FAERS Safety Report 6812854-X (Version None)
Quarter: 2010Q3

REPORT INFORMATION
  Report Type: 
  Country: None (occurrence: None)
  Receive Date: 20100701
  Receipt Date: 20100621
  Transmission Date: 20110219
  Serious: Yes (Death)
  Sender: FDA-Public Use
  Company Number: US-ABBOTT-09P-163-0586694-00

PATIENT
  Sex: Female
  Weight: 90.8 kg

DRUGS (4)
  1. HUMIRA [Suspect]
     Indication: PSORIASIS
     Dates: start: 20090601, end: 20090719
  2. CRYSTAL METH [Suspect]
     Indication: DRUG ABUSE
  3. UNKNOWN ANTIHYPERTENSIVE [Concomitant]
     Indication: HYPERTENSION
     Dates: end: 20090719
  4. UNKNOWN ITCHING PILL [Concomitant]
     Indication: PSORIASIS
     Dates: end: 20090719

REACTIONS (2)
  - CHEST PAIN [None]
  - OVERDOSE [None]
